FAERS Safety Report 21948039 (Version 1)
Quarter: 2023Q1

REPORT INFORMATION
  Report Type: Spontaneous
  Country: TH (occurrence: TH)
  Receive Date: 20230203
  Receipt Date: 20230203
  Transmission Date: 20230418
  Serious: Yes (Death, Hospitalization, Other)
  Sender: FDA-Public Use
  Company Number: TH-BoehringerIngelheim-2023-BI-216040

PATIENT
  Age: 80 Year
  Sex: Male
  Weight: 57 kg

DRUGS (8)
  1. NINTEDANIB [Suspect]
     Active Substance: NINTEDANIB
     Indication: Idiopathic pulmonary fibrosis
     Route: 048
     Dates: start: 20200810, end: 20220803
  2. NINTEDANIB [Suspect]
     Active Substance: NINTEDANIB
     Dosage: OFEV 150MG/ TAB 1/2 X2
     Route: 048
     Dates: start: 20220804, end: 20221124
  3. SPIRIVA [Concomitant]
     Active Substance: TIOTROPIUM BROMIDE MONOHYDRATE
     Indication: Chronic obstructive pulmonary disease
     Dates: start: 20200813, end: 20221124
  4. LINAGLIPTIN [Concomitant]
     Active Substance: LINAGLIPTIN
     Indication: Type 2 diabetes mellitus
     Route: 048
     Dates: start: 20220602, end: 20221124
  5. SERETIDE [Concomitant]
     Active Substance: FLUTICASONE PROPIONATE\SALMETEROL XINAFOATE
     Indication: Chronic obstructive pulmonary disease
     Dosage: SERETIDE EVOHALER (25/250) 1X2 (INHALER)
     Route: 055
     Dates: start: 20200910, end: 20221124
  6. METFORMIN [Concomitant]
     Active Substance: METFORMIN HYDROCHLORIDE
     Indication: Type 2 diabetes mellitus
     Dosage: METFORMIN (500) 1X2 AC (1000 MG/DAY)
     Route: 048
     Dates: start: 20201203, end: 20221124
  7. PUROXAN [Concomitant]
     Indication: Chronic obstructive pulmonary disease
     Dosage: PUROXAN (400 MG) 1/2 X 2 PC
     Route: 048
     Dates: start: 20200813, end: 20221124
  8. ATORVASTATIN [Concomitant]
     Active Substance: ATORVASTATIN
     Indication: Dyslipidaemia
     Dosage: ATORVASTATIN 40 MG  ORAL
     Route: 048
     Dates: start: 20220929, end: 20221124

REACTIONS (4)
  - Upper gastrointestinal haemorrhage [Fatal]
  - Chronic obstructive pulmonary disease [Recovered/Resolved]
  - Atrial fibrillation [Recovered/Resolved]
  - COVID-19 pneumonia [Recovered/Resolved with Sequelae]

NARRATIVE: CASE EVENT DATE: 20221106
